FAERS Safety Report 15229954 (Version 3)
Quarter: 2018Q3

REPORT INFORMATION
  Report Type: Spontaneous
  Country: JP (occurrence: JP)
  Receive Date: 20180802
  Receipt Date: 20180827
  Transmission Date: 20181010
  Serious: No
  Sender: FDA-Public Use
  Company Number: JP-TAKEDA-2018TUS023723

PATIENT
  Age: 5 Decade
  Sex: Female

DRUGS (1)
  1. ICLUSIG [Suspect]
     Active Substance: PONATINIB
     Indication: CHRONIC MYELOID LEUKAEMIA
     Dosage: 15 MG, QD
     Route: 048
     Dates: start: 20180712

REACTIONS (1)
  - Arteritis [Recovering/Resolving]

NARRATIVE: CASE EVENT DATE: 201807
